FAERS Safety Report 12546547 (Version 2)
Quarter: 2016Q3

REPORT INFORMATION
  Report Type: Report from Study
  Country: GR (occurrence: GR)
  Receive Date: 20160711
  Receipt Date: 20160727
  Transmission Date: 20161109
  Serious: Yes (Hospitalization)
  Sender: FDA-Public Use
  Company Number: GR-ABBVIE-16K-066-1672067-00

PATIENT
  Age: 59 Year
  Sex: Female
  Weight: 45 kg

DRUGS (1)
  1. DUODOPA [Suspect]
     Active Substance: CARBIDOPA\LEVODOPA
     Indication: PARKINSON^S DISEASE
     Dosage: MORNING DOSE: 9.5 ML;CONTINUOUS RATE: 3 ML/H;EXTRA DOSE: 2 ML
     Route: 050
     Dates: start: 200911

REACTIONS (4)
  - Mobility decreased [Not Recovered/Not Resolved]
  - Urinary tract infection [Recovering/Resolving]
  - Bedridden [Not Recovered/Not Resolved]
  - Weight decreased [Not Recovered/Not Resolved]

NARRATIVE: CASE EVENT DATE: 2016
